FAERS Safety Report 8785737 (Version 1)
Quarter: 2012Q4

REPORT INFORMATION
  Report Type: 
  Country: US (occurrence: US)
  Receive Date: 20120914
  Receipt Date: 20120914
  Transmission Date: 20130627
  Serious: Yes (Death, Hospitalization)
  Sender: FDA-Public Use
  Company Number: US-GLAXOSMITHKLINE-A0747135A

PATIENT
  Age: 73 Year
  Sex: Female
  Weight: 81.8 kg

DRUGS (1)
  1. AVANDIA [Suspect]
     Indication: TYPE 2 DIABETES MELLITUS
     Dates: start: 20060123, end: 20060722

REACTIONS (4)
  - Cerebrovascular accident [Fatal]
  - Myocardial infarction [Unknown]
  - Cardiac failure congestive [Unknown]
  - Lip swelling [Unknown]
